FAERS Safety Report 7700099-0 (Version None)
Quarter: 2011Q3

REPORT INFORMATION
  Report Type: 
  Country: None (occurrence: None)
  Receive Date: 20110822
  Receipt Date: 20110815
  Transmission Date: 20111222
  Serious: Yes (Hospitalization, Disabling, Other)
  Sender: FDA-Public Use
  Company Number: BR-BAYER-2011-058872

PATIENT
  Age: 58 Year
  Sex: Male
  Weight: 86 kg

DRUGS (11)
  1. NEXAVAR [Suspect]
     Indication: HEPATIC NEOPLASM MALIGNANT
     Dosage: 400 MG, BID
     Route: 048
     Dates: start: 20090930
  2. ISORDIL [Concomitant]
     Indication: CHEST PAIN
     Dosage: 2 DF, QD
     Route: 048
     Dates: start: 20110514
  3. CARVEDILOL [Concomitant]
     Indication: CARDIAC DISORDER
     Dosage: 2 DF, QD
     Route: 048
     Dates: start: 20100205
  4. ESPIRONOLACTONA [Concomitant]
     Indication: PRODUCT USED FOR UNKNOWN INDICATION
     Dosage: 1 DF, QD
     Route: 048
     Dates: start: 20110506
  5. NEXAVAR [Suspect]
     Indication: HEPATIC CIRRHOSIS
     Dosage: 200 MG, QOD
     Route: 048
     Dates: start: 20110607
  6. NEXAVAR [Suspect]
     Dosage: 200 MG, QD
     Route: 048
  7. NEOMYCIN SULFATE [Concomitant]
     Indication: HEPATIC INFECTION
     Dosage: 2 DF, BID
     Route: 048
     Dates: start: 20090930
  8. NEXAVAR [Suspect]
     Dosage: UNK
     Route: 048
     Dates: end: 20110812
  9. ENALAPRIL MALEATE [Concomitant]
     Indication: CARDIAC DISORDER
     Dosage: 1 DF, BID
     Route: 048
     Dates: start: 20090217
  10. OMEPRAZOLE [Concomitant]
     Indication: NAUSEA
     Dosage: 1 DF, QD
     Route: 048
     Dates: start: 20090930
  11. NEOSALDINA [Concomitant]
     Indication: HEADACHE
     Dosage: 1 DF, QD
     Route: 048
     Dates: start: 20100223

REACTIONS (15)
  - ALOPECIA [None]
  - FALL [None]
  - RASH MACULAR [None]
  - BLISTER [None]
  - PAIN [None]
  - CONSTIPATION [None]
  - INCONTINENCE [None]
  - HYPERAESTHESIA [None]
  - SCHISTOSOMIASIS [None]
  - CHEST PAIN [None]
  - ENCEPHALOPATHY [None]
  - SYNCOPE [None]
  - FEELING HOT [None]
  - NAUSEA [None]
  - LOSS OF CONSCIOUSNESS [None]
